FAERS Safety Report 11983330 (Version 1)
Quarter: 2016Q1

REPORT INFORMATION
  Report Type: Spontaneous
  Country: CN (occurrence: CN)
  Receive Date: 20160201
  Receipt Date: 20160201
  Transmission Date: 20160526
  Serious: Yes (Death, Hospitalization)
  Sender: FDA-Public Use
  Company Number: CN-MYLANLABS-2016M1003941

PATIENT

DRUGS (4)
  1. ETHAMBUTOL [Suspect]
     Active Substance: ETHAMBUTOL HYDROCHLORIDE
     Indication: ANTIBIOTIC PROPHYLAXIS
     Dosage: UNK
     Route: 065
  2. RIFAMPICIN [Suspect]
     Active Substance: RIFAMPIN
     Indication: ANTIBIOTIC PROPHYLAXIS
     Dosage: 480 MG/DAY
     Route: 065
  3. PYRAZINAMIDE. [Suspect]
     Active Substance: PYRAZINAMIDE
     Indication: ANTIBIOTIC PROPHYLAXIS
     Dosage: 1200 MG/DAY
     Route: 065
  4. ISONIAZID. [Suspect]
     Active Substance: ISONIAZID
     Indication: ANTIBIOTIC PROPHYLAXIS
     Dosage: 200 MG/DAY
     Route: 065

REACTIONS (2)
  - Cholangitis [Fatal]
  - Acute hepatic failure [Not Recovered/Not Resolved]
